FAERS Safety Report 14407111 (Version 1)
Quarter: 2018Q1

REPORT INFORMATION
  Report Type: Spontaneous
  Country: US (occurrence: US)
  Receive Date: 20180118
  Receipt Date: 20180118
  Transmission Date: 20180509
  Serious: Yes (Death)
  Sender: FDA-Public Use
  Company Number: US-TEVA-2018-US-846859

PATIENT
  Age: 61 Year
  Sex: Male

DRUGS (2)
  1. MYCOPHENOLATE MOFETIL. [Suspect]
     Active Substance: MYCOPHENOLATE MOFETIL
     Indication: IMMUNOSUPPRESSANT DRUG THERAPY
     Route: 065
  2. LACTULOSE. [Concomitant]
     Active Substance: LACTULOSE
     Indication: METABOLIC ENCEPHALOPATHY
     Route: 065

REACTIONS (6)
  - Pericarditis infective [Fatal]
  - Aspergillus infection [Fatal]
  - Septic shock [Fatal]
  - Cardiac tamponade [Fatal]
  - Endocarditis [Fatal]
  - Septic embolus [Fatal]
